FAERS Safety Report 8021289-6 (Version None)
Quarter: 2012Q1

REPORT INFORMATION
  Report Type: 
  Country: None (occurrence: None)
  Receive Date: 20120104
  Receipt Date: 20111222
  Transmission Date: 20120608
  Serious: Yes (Hospitalization)
  Sender: FDA-Public Use
  Company Number: US-BAYER-2011-041872

PATIENT
  Age: 33 Year
  Sex: Female
  Weight: 108 kg

DRUGS (7)
  1. PREVACID [Concomitant]
     Indication: DYSPEPSIA
     Dosage: 30 MG, QD
     Route: 048
  2. SLIM FAST PROTEIN SHAKES MIX [Concomitant]
     Indication: SUPPLEMENTATION THERAPY
     Dosage: 1 DF, BID
     Route: 048
     Dates: start: 19970101
  3. YAZ [Suspect]
     Indication: PREMENSTRUAL SYNDROME
  4. YAZ [Suspect]
     Indication: CONTRACEPTION
     Dosage: UNK
     Dates: start: 20061219, end: 20070124
  5. ALLI [Concomitant]
     Indication: SUPPLEMENTATION THERAPY
     Dosage: 1 DF, TID
     Route: 048
     Dates: start: 20070101, end: 20080101
  6. FLOVENT [Concomitant]
     Indication: ASTHMA
     Dosage: 2 PUFF(S), Q4HR
     Route: 048
  7. PREDNISONE TAB [Concomitant]
     Indication: ASTHMA
     Dosage: 20 MG, QD
     Route: 048

REACTIONS (9)
  - CHEST PAIN [None]
  - INJURY [None]
  - DYSPNOEA [None]
  - PULMONARY EMBOLISM [None]
  - PAIN [None]
  - ANXIETY [None]
  - EMOTIONAL DISTRESS [None]
  - GENERAL PHYSICAL HEALTH DETERIORATION [None]
  - FEAR OF DEATH [None]
